FAERS Safety Report 7817663-0 (Version None)
Quarter: 2011Q4

REPORT INFORMATION
  Report Type: 
  Country: None (occurrence: None)
  Receive Date: 20111017
  Receipt Date: 20111003
  Transmission Date: 20120403
  Serious: Yes (Hospitalization)
  Sender: FDA-Public Use
  Company Number: FR-CELGENEUS-AZAFR200800104

PATIENT
  Sex: Male

DRUGS (9)
  1. ISKEDYL FORT [Concomitant]
     Route: 048
  2. ATORVASTATIN CALCIUM [Suspect]
     Dosage: 10 MILLIGRAM
     Route: 048
  3. VIDAZA [Suspect]
     Route: 058
     Dates: start: 20070630
  4. VESANOID [Suspect]
     Route: 048
     Dates: start: 20070606
  5. PERMIXON [Concomitant]
     Dosage: 320 MILLIGRAM
     Route: 048
  6. SPECIAFOLDINE [Concomitant]
     Dosage: 10 MILLIGRAM
     Route: 065
  7. DEPAKENE [Suspect]
     Route: 048
     Dates: start: 20070630
  8. ALLOPURINOL [Suspect]
     Dosage: 300 MILLIGRAM
     Route: 048
  9. RAUBASINE DIHYDROERGOCRISTINE [Concomitant]
     Route: 065

REACTIONS (1)
  - TYPE 1 DIABETES MELLITUS [None]
